FAERS Safety Report 10486194 (Version 1)
Quarter: 2014Q3

REPORT INFORMATION
  Report Type: Spontaneous
  Country: US (occurrence: None)
  Receive Date: 20140926
  Receipt Date: 20140926
  Transmission Date: 20150326
  Serious: Yes (Hospitalization, Other)
  Sender: FDA-Public Use
  Company Number: 2010S1000527C

PATIENT
  Age: 73 Year
  Sex: Female

DRUGS (2)
  1. PHOSPHO-SODA [Suspect]
     Active Substance: SODIUM PHOSPHATE, DIBASIC\SODIUM PHOSPHATE, MONOBASIC
     Indication: COLONOSCOPY
     Dosage: 2 IN DAYS, ORAL
     Route: 048
     Dates: start: 20080608, end: 20080609
  2. DULCOLAX [Suspect]
     Active Substance: BISACODYL OR DOCUSATE SODIUM
     Route: 048

REACTIONS (29)
  - Renal atrophy [None]
  - Haemorrhoids [None]
  - Haemodialysis [None]
  - Renal tubular necrosis [None]
  - Cholelithiasis [None]
  - Dehydration [None]
  - Hypomagnesaemia [None]
  - Urine odour abnormal [None]
  - Vascular compression [None]
  - Atrial fibrillation [None]
  - Hyperglycaemia [None]
  - Fatigue [None]
  - Pyelonephritis [None]
  - Cor pulmonale chronic [None]
  - Azotaemia [None]
  - Ileus paralytic [None]
  - Leukocytosis [None]
  - Nephrosclerosis [None]
  - Abdominal pain [None]
  - Cervix carcinoma [None]
  - Malaise [None]
  - Renal failure acute [None]
  - Hydronephrosis [None]
  - Hyperkalaemia [None]
  - Renal failure chronic [None]
  - Hypokalaemia [None]
  - Nephrogenic anaemia [None]
  - Sepsis [None]
  - Hyponatraemia [None]

NARRATIVE: CASE EVENT DATE: 20080928
